FAERS Safety Report 7507682-6 (Version None)
Quarter: 2011Q2

REPORT INFORMATION
  Report Type: 
  Country: None (occurrence: None)
  Receive Date: 20110527
  Receipt Date: 20110518
  Transmission Date: 20111010
  Serious: Yes (Hospitalization)
  Sender: FDA-Public Use
  Company Number: US-BIOGENIDEC-2011BI008919

PATIENT
  Age: 60 Year
  Sex: Female

DRUGS (2)
  1. AVONEX [Suspect]
     Indication: MULTIPLE SCLEROSIS
     Route: 030
     Dates: start: 20090111
  2. AVONEX [Suspect]
     Route: 030
     Dates: start: 20021001, end: 20070606

REACTIONS (4)
  - EYE PAIN [None]
  - ABASIA [None]
  - HEADACHE [None]
  - PNEUMONIA [None]
